FAERS Safety Report 16326137 (Version 1)
Quarter: 2019Q2

REPORT INFORMATION
  Report Type: Spontaneous
  Country: US (occurrence: US)
  Receive Date: 20190517
  Receipt Date: 20190517
  Transmission Date: 20190711
  Serious: No
  Sender: FDA-Public Use
  Company Number: US-ACTELION-A-NJ2019-189791

PATIENT
  Age: 67 Year
  Sex: Female

DRUGS (14)
  1. NITROGLYCERIN. [Concomitant]
     Active Substance: NITROGLYCERIN
  2. PREDNISONE. [Concomitant]
     Active Substance: PREDNISONE
     Dosage: 10 MG
  3. ATORVASTATIN [Concomitant]
     Active Substance: ATORVASTATIN
     Dosage: 80 MG
  4. GABAPENTIN. [Concomitant]
     Active Substance: GABAPENTIN
  5. ISOSORB DINIT [Concomitant]
     Dosage: 30 MG
  6. CALCIUM ACETATE. [Concomitant]
     Active Substance: CALCIUM ACETATE
  7. RENAGEL [Concomitant]
     Active Substance: SEVELAMER HYDROCHLORIDE
  8. OPSUMIT [Suspect]
     Active Substance: MACITENTAN
     Indication: SLEEP APNOEA SYNDROME
     Dosage: 10 MG, QD
     Route: 048
  9. ALLOPURINOL. [Concomitant]
     Active Substance: ALLOPURINOL
  10. AZITHROMYCIN ANHYDROUS. [Concomitant]
     Active Substance: AZITHROMYCIN ANHYDROUS
  11. CLONIDINE. [Concomitant]
     Active Substance: CLONIDINE
  12. METOPROLOL SUCCINATE. [Concomitant]
     Active Substance: METOPROLOL SUCCINATE
  13. SENSIPAR [Concomitant]
     Active Substance: CINACALCET HYDROCHLORIDE
  14. RENVELA [Concomitant]
     Active Substance: SEVELAMER CARBONATE

REACTIONS (2)
  - Memory impairment [Unknown]
  - Product dose omission [Unknown]

NARRATIVE: CASE EVENT DATE: 201812
